FAERS Safety Report 5804294-7 (Version None)
Quarter: 2008Q3

REPORT INFORMATION
  Report Type: 
  Country: None (occurrence: None)
  Receive Date: 20080709
  Receipt Date: 20080625
  Transmission Date: 20090109
  Serious: Yes (Other)
  Sender: FDA-Public Use
  Company Number: US-BAYER-200821583GPV

PATIENT
  Age: 70 Year
  Sex: Female

DRUGS (7)
  1. SORAFENIB [Suspect]
     Indication: METASTATIC RENAL CELL CARCINOMA
     Dosage: TOTAL DAILY DOSE: 800 MG
     Route: 048
  2. TIPIFARNIB [Suspect]
     Indication: METASTATIC RENAL CELL CARCINOMA
     Dosage: TOTAL DAILY DOSE: 200 MG
     Route: 048
  3. INTERFERON ALFA [Concomitant]
     Indication: DRUG USE FOR UNKNOWN INDICATION
  4. CAPECITABINE [Concomitant]
     Indication: DRUG USE FOR UNKNOWN INDICATION
  5. GEMCITABINE [Concomitant]
     Indication: DRUG USE FOR UNKNOWN INDICATION
  6. PREDNISOLONE [Concomitant]
     Indication: DRUG USE FOR UNKNOWN INDICATION
     Route: 065
  7. DIPHENHYDRAMINE HYDROCHLORIDE [Concomitant]
     Indication: DRUG USE FOR UNKNOWN INDICATION
     Route: 065

REACTIONS (1)
  - SQUAMOUS CELL CARCINOMA OF SKIN [None]
